FAERS Safety Report 4653782-8 (Version None)
Quarter: 2005Q2

REPORT INFORMATION
  Report Type: 
  Country: None (occurrence: None)
  Receive Date: 20050404
  Receipt Date: 20041112
  Transmission Date: 20051028
  Serious: No
  Sender: FDA-Public Use
  Company Number: US_0411108237

PATIENT
  Age: 59 Year
  Sex: Male

DRUGS (2)
  1. CYMBALTA (DULOEXTINE HYDROCHLORIDE) [Suspect]
     Indication: IRRITABILITY
     Dosage: 30 MG/1 DAY
     Dates: start: 20041101
  2. TRAZODONE HCL [Concomitant]

REACTIONS (3)
  - CONSTIPATION [None]
  - FATIGUE [None]
  - STOMACH DISCOMFORT [None]
